FAERS Safety Report 20075555 (Version 1)
Quarter: 2021Q4

REPORT INFORMATION
  Report Type: Spontaneous
  Country: US (occurrence: None)
  Receive Date: 20211115
  Receipt Date: 20211115
  Transmission Date: 20220304
  Serious: No
  Sender: FDA-Public Use
  Company Number: None

PATIENT
  Age: 58 Year
  Sex: Male
  Weight: 92.5 kg

DRUGS (3)
  1. CLEVIPREX [Suspect]
     Active Substance: CLEVIDIPINE
  2. POTASSIUM [Suspect]
     Active Substance: POTASSIUM
  3. KEPPRA [Suspect]
     Active Substance: LEVETIRACETAM

REACTIONS (2)
  - Bradycardia [None]
  - Bundle branch block right [None]

NARRATIVE: CASE EVENT DATE: 20211111
